FAERS Safety Report 12265753 (Version 2)
Quarter: 2016Q2

REPORT INFORMATION
  Report Type: Spontaneous
  Country: JP (occurrence: JP)
  Receive Date: 20160413
  Receipt Date: 20160420
  Transmission Date: 20160815
  Serious: Yes (Death, Life-Threatening, Hospitalization, Other)
  Sender: FDA-Public Use
  Company Number: JP-CELGENEUS-JPN-2016041330

PATIENT
  Age: 76 Year
  Sex: Female
  Weight: 43 kg

DRUGS (14)
  1. PRIMPERAN [Concomitant]
     Active Substance: METOCLOPRAMIDE HYDROCHLORIDE
     Indication: PROPHYLAXIS OF NAUSEA AND VOMITING
     Route: 048
  2. MAINTATE [Concomitant]
     Active Substance: BISOPROLOL FUMARATE
     Indication: PRODUCT USED FOR UNKNOWN INDICATION
     Dosage: 6.6 MILLIGRAM
     Route: 048
     Dates: start: 20160216
  3. PARIET [Concomitant]
     Active Substance: RABEPRAZOLE SODIUM
     Indication: PRODUCT USED FOR UNKNOWN INDICATION
     Route: 048
     Dates: start: 20160216
  4. GRANISETRON HYDROCHLORIDE. [Concomitant]
     Active Substance: GRANISETRON HYDROCHLORIDE
     Indication: PROPHYLAXIS OF NAUSEA AND VOMITING
     Route: 041
     Dates: start: 20160310, end: 20160317
  5. COCARL [Concomitant]
     Active Substance: ACETAMINOPHEN
     Indication: ANALGESIC THERAPY
     Route: 048
  6. ABRAXANE [Suspect]
     Active Substance: PACLITAXEL
     Indication: PANCREATIC CARCINOMA METASTATIC
     Dosage: 160 MILLIGRAM
     Route: 041
     Dates: start: 20160310, end: 20160317
  7. ALLEGRA [Concomitant]
     Active Substance: FEXOFENADINE HYDROCHLORIDE
     Indication: RASH
     Route: 048
     Dates: start: 20160317
  8. KETOPROFEN. [Concomitant]
     Active Substance: KETOPROFEN
     Indication: PRODUCT USED FOR UNKNOWN INDICATION
     Dosage: 3 MILLIGRAM
     Route: 061
     Dates: start: 20160216
  9. CELECOX [Concomitant]
     Active Substance: CELECOXIB
     Indication: ANALGESIC THERAPY
     Route: 048
  10. GEMZAR [Suspect]
     Active Substance: GEMCITABINE HYDROCHLORIDE
     Indication: PANCREATIC CARCINOMA
     Route: 041
     Dates: start: 20160310, end: 20160317
  11. DECADRON [Concomitant]
     Active Substance: DEXAMETHASONE
     Indication: PROPHYLAXIS OF NAUSEA AND VOMITING
     Dosage: 1300 MILLIGRAM
     Route: 041
     Dates: start: 20160310, end: 20160317
  12. MAGNESIUM OXIDE. [Concomitant]
     Active Substance: MAGNESIUM OXIDE
     Indication: PRODUCT USED FOR UNKNOWN INDICATION
     Dosage: 400 MILLIGRAM
     Route: 048
     Dates: start: 20160216
  13. SERENACE [Concomitant]
     Active Substance: HALOPERIDOL
     Indication: PROPHYLAXIS OF NAUSEA AND VOMITING
     Route: 048
     Dates: start: 20160310, end: 2016
  14. HERBESSER [Concomitant]
     Active Substance: DILTIAZEM HYDROCHLORIDE
     Indication: PRODUCT USED FOR UNKNOWN INDICATION
     Route: 048
     Dates: start: 20160216

REACTIONS (8)
  - Pancreatic carcinoma metastatic [Fatal]
  - Dehydration [Unknown]
  - Stomatitis [Not Recovered/Not Resolved]
  - Diarrhoea [Not Recovered/Not Resolved]
  - Hypertrophic cardiomyopathy [Fatal]
  - Nausea [Not Recovered/Not Resolved]
  - Febrile neutropenia [Fatal]
  - Atrial flutter [Unknown]

NARRATIVE: CASE EVENT DATE: 20160317
